FAERS Safety Report 4965659-9 (Version None)
Quarter: 2006Q1

REPORT INFORMATION
  Report Type: 
  Country: None (occurrence: None)
  Receive Date: 20060201
  Receipt Date: 20051117
  Transmission Date: 20060701
  Serious: No
  Sender: FDA-Public Use
  Company Number: 2005PV005160

PATIENT
  Age: 52 Year
  Sex: Female
  Weight: 132.9039 kg

DRUGS (6)
  1. BYETTA [Suspect]
     Indication: DIABETES MELLITUS NON-INSULIN-DEPENDENT
     Dosage: 5 MCG; QD; SC;  5 MCG; BID; SC;  5 MCG; BID; SC
     Route: 058
     Dates: start: 20050901, end: 20050901
  2. BYETTA [Suspect]
     Indication: DIABETES MELLITUS NON-INSULIN-DEPENDENT
     Dosage: 5 MCG; QD; SC;  5 MCG; BID; SC;  5 MCG; BID; SC
     Route: 058
     Dates: start: 20051107, end: 20051116
  3. BYETTA [Suspect]
     Indication: DIABETES MELLITUS NON-INSULIN-DEPENDENT
     Dosage: 5 MCG; QD; SC;  5 MCG; BID; SC;  5 MCG; BID; SC
     Route: 058
     Dates: start: 20051117
  4. HUMALOG [Concomitant]
  5. LANTUS [Concomitant]
  6. AMARYL [Concomitant]

REACTIONS (1)
  - INSOMNIA [None]
